FAERS Safety Report 9438199 (Version 1)
Quarter: 2013Q3

REPORT INFORMATION
  Report Type: Spontaneous
  Country: US (occurrence: US)
  Receive Date: 20130802
  Receipt Date: 20130802
  Transmission Date: 20140515
  Serious: No
  Sender: FDA-Public Use
  Company Number: US-BRISTOL-MYERS SQUIBB COMPANY-16967523

PATIENT
  Age: 95 Year
  Sex: Male
  Weight: 78.91 kg

DRUGS (5)
  1. COUMADIN [Suspect]
     Dosage: 5MG 4 TIMES PER WEEK AND 2.5MG FOR THE REST OF THE WEEK. TABLET, BOTTLE PACK.
     Dates: start: 2005
  2. WARFARIN SODIUM [Suspect]
  3. POTASSIUM [Suspect]
  4. COREG [Concomitant]
  5. PAXIL [Concomitant]

REACTIONS (7)
  - Renal impairment [Recovered/Resolved]
  - Prothrombin time shortened [Unknown]
  - Skin ulcer [Unknown]
  - Cough [Unknown]
  - Nausea [Unknown]
  - Weight decreased [Unknown]
  - Insomnia [Unknown]
